FAERS Safety Report 5533276-8 (Version None)
Quarter: 2007Q4

REPORT INFORMATION
  Report Type: 
  Country: None (occurrence: None)
  Receive Date: 20071204
  Receipt Date: 20071130
  Transmission Date: 20080405
  Serious: Yes (Other)
  Sender: FDA-Public Use
  Company Number: D0055082A

PATIENT
  Age: 28 Year
  Sex: Female

DRUGS (1)
  1. AMOXIL [Suspect]
     Indication: OTITIS MEDIA
     Dosage: 500MG UNKNOWN
     Route: 048
     Dates: start: 20070101, end: 20070101

REACTIONS (5)
  - ANAPHYLACTOID REACTION [None]
  - BLOOD PRESSURE DECREASED [None]
  - DRUG ERUPTION [None]
  - HEADACHE [None]
  - RASH [None]
